FAERS Safety Report 5655726-9 (Version None)
Quarter: 2008Q1

REPORT INFORMATION
  Report Type: 
  Country: None (occurrence: None)
  Receive Date: 20080307
  Receipt Date: 20080229
  Transmission Date: 20080703
  Serious: Yes (Other)
  Sender: FDA-Public Use
  Company Number: US-PFIZER INC-2007073105

PATIENT
  Sex: Female
  Weight: 57.272 kg

DRUGS (2)
  1. LIPITOR [Suspect]
     Indication: BLOOD CHOLESTEROL INCREASED
  2. LEXAPRO [Concomitant]

REACTIONS (6)
  - ACTIVITIES OF DAILY LIVING IMPAIRED [None]
  - BLOOD CHOLESTEROL INCREASED [None]
  - MYALGIA [None]
  - POLYMYALGIA RHEUMATICA [None]
  - RED BLOOD CELL SEDIMENTATION RATE INCREASED [None]
  - UNEVALUABLE EVENT [None]
